FAERS Safety Report 16805488 (Version 1)
Quarter: 2019Q3

REPORT INFORMATION
  Report Type: Spontaneous
  Country: IT (occurrence: IT)
  Receive Date: 20190913
  Receipt Date: 20190913
  Transmission Date: 20191005
  Serious: Yes (Hospitalization)
  Sender: FDA-Public Use
  Company Number: IT-PFIZER INC-2019392329

PATIENT
  Age: 75 Year
  Sex: Male

DRUGS (7)
  1. VASEXTEN [Suspect]
     Active Substance: BARNIDIPINE HYDROCHLORIDE
     Indication: HYPERTENSION
     Dosage: 20 MG, ONCE A DAY
     Route: 048
  2. DIUREMID [TORASEMIDE] [Concomitant]
     Dosage: UNK
  3. PANTORC [Concomitant]
     Active Substance: PANTOPRAZOLE SODIUM
     Dosage: UNK
  4. TOTALIP [Concomitant]
     Active Substance: ATORVASTATIN
     Dosage: UNK
  5. CARDURA [Suspect]
     Active Substance: DOXAZOSIN MESYLATE
     Indication: HYPERTENSION
     Dosage: 4 MG, ONCE A DAY
     Route: 048
  6. UROREC [Concomitant]
     Active Substance: SILODOSIN
     Dosage: UNK
  7. PLAUNAC [Suspect]
     Active Substance: OLMESARTAN MEDOXOMIL
     Indication: HYPERTENSION
     Dosage: 40 MG, ONCE A DAY
     Route: 048

REACTIONS (3)
  - Vertigo [Recovering/Resolving]
  - Tachycardia [Recovering/Resolving]
  - Presyncope [Recovering/Resolving]

NARRATIVE: CASE EVENT DATE: 20190109
